FAERS Safety Report 23877117 (Version 3)
Quarter: 2024Q3

REPORT INFORMATION
  Report Type: Spontaneous
  Country: CA (occurrence: CA)
  Receive Date: 20240521
  Receipt Date: 20240706
  Transmission Date: 20241016
  Serious: Yes (Hospitalization, Other)
  Sender: AUROBINDO
  Company Number: CA-AUROBINDO-AUR-APL-2024-023291

PATIENT
  Age: 2 Month

DRUGS (4)
  1. GANCICLOVIR [Suspect]
     Active Substance: GANCICLOVIR
     Indication: Congenital cytomegalovirus infection
     Dosage: UNK
     Route: 065
  2. SULFAMETHOXAZOLE\TRIMETHOPRIM [Suspect]
     Active Substance: SULFAMETHOXAZOLE\TRIMETHOPRIM
     Indication: Pneumocystis jirovecii infection
     Dosage: UNK
     Route: 065
  3. COBALAMIN [Suspect]
     Active Substance: COBALAMIN
     Indication: Transcobalamin deficiency
     Dosage: UNK
     Route: 030
  4. COBALAMIN [Suspect]
     Active Substance: COBALAMIN
     Indication: Vitamin supplementation

REACTIONS (4)
  - Immune reconstitution inflammatory syndrome [Unknown]
  - Neonatal respiratory distress syndrome [Recovered/Resolved]
  - Interstitial lung disease [Recovered/Resolved]
  - Drug ineffective [Unknown]
